FAERS Safety Report 24568727 (Version 1)
Quarter: 2024Q4

REPORT INFORMATION
  Report Type: Spontaneous
  Country: US (occurrence: US)
  Receive Date: 20241031
  Receipt Date: 20241031
  Transmission Date: 20250115
  Serious: Yes (Hospitalization, Other)
  Sender: DR REDDYS
  Company Number: None

PATIENT
  Age: 57 Year
  Sex: Female

DRUGS (2)
  1. GEMCITABINE [Suspect]
     Active Substance: GEMCITABINE
     Indication: Chemotherapy
     Route: 065
  2. CAPECITABINE [Suspect]
     Active Substance: CAPECITABINE
     Indication: Chemotherapy
     Route: 065

REACTIONS (5)
  - Abdominal distension [Unknown]
  - Steatohepatitis [Not Recovered/Not Resolved]
  - Portal hypertensive gastropathy [Unknown]
  - Varices oesophageal [Unknown]
  - Gastrointestinal haemorrhage [Unknown]
